APPROVED DRUG PRODUCT: CARBIDOPA AND LEVODOPA
Active Ingredient: CARBIDOPA; LEVODOPA
Strength: 50MG;200MG
Dosage Form/Route: TABLET, EXTENDED RELEASE;ORAL
Application: A217482 | Product #002 | TE Code: AB
Applicant: RUBICON RESEARCH LTD
Approved: Jun 4, 2024 | RLD: No | RS: No | Type: RX